FAERS Safety Report 19192837 (Version 1)
Quarter: 2021Q2

REPORT INFORMATION
  Report Type: Spontaneous
  Country: US (occurrence: US)
  Receive Date: 20210429
  Receipt Date: 20210429
  Transmission Date: 20210717
  Serious: No
  Sender: FDA-Public Use
  Company Number: US-SCIEGENPHARMA-2021SCISPO00401

PATIENT
  Sex: Female

DRUGS (1)
  1. LAMOTRIGINE TABLETS [Suspect]
     Active Substance: LAMOTRIGINE
     Indication: BIPOLAR I DISORDER
     Route: 048

REACTIONS (14)
  - Sleep talking [Unknown]
  - Vision blurred [Unknown]
  - Headache [Unknown]
  - Dissociation [Unknown]
  - Panic attack [Unknown]
  - Euphoric mood [Unknown]
  - Crying [Unknown]
  - Product substitution issue [Unknown]
  - Insomnia [Unknown]
  - Mania [Unknown]
  - Dizziness [Unknown]
  - Anger [Unknown]
  - Tremor [Unknown]
  - Drug ineffective [Unknown]
